FAERS Safety Report 6996582-6 (Version None)
Quarter: 2010Q3

REPORT INFORMATION
  Report Type: 
  Country: None (occurrence: None)
  Receive Date: 20100918
  Receipt Date: 20090603
  Transmission Date: 20110219
  Serious: No
  Sender: FDA-Public Use
  Company Number: US-WYE-H09603709

PATIENT
  Age: 29 Year
  Sex: Male

DRUGS (3)
  1. EFFEXOR XR [Suspect]
     Indication: DEPRESSION
     Route: 048
     Dates: start: 20090501
  2. TOPAMAX [Concomitant]
  3. CRESTOR [Concomitant]

REACTIONS (1)
  - MEDICATION RESIDUE [None]
